FAERS Safety Report 21283828 (Version 1)
Quarter: 2022Q3

REPORT INFORMATION
  Report Type: Report from Study
  Country: US (occurrence: US)
  Receive Date: 20220901
  Receipt Date: 20220901
  Transmission Date: 20221026
  Serious: Yes (Hospitalization, Other)
  Sender: FDA-Public Use
  Company Number: US-ABBVIE-22P-163-4513453-00

PATIENT

DRUGS (5)
  1. VENETOCLAX [Suspect]
     Active Substance: VENETOCLAX
     Indication: Bone cancer
     Route: 048
     Dates: start: 20220726, end: 20220726
  2. VENETOCLAX [Suspect]
     Active Substance: VENETOCLAX
     Route: 048
     Dates: start: 20220727, end: 20220727
  3. VENETOCLAX [Suspect]
     Active Substance: VENETOCLAX
     Dosage: ON DAY 3- DAY 14
     Route: 048
     Dates: start: 20220728, end: 20220808
  4. NAVITOCLAX [Suspect]
     Active Substance: NAVITOCLAX
     Indication: Bone cancer
     Route: 048
     Dates: start: 20220726, end: 20220808
  5. DECITABINE [Concomitant]
     Active Substance: DECITABINE
     Indication: Bone cancer
     Dates: start: 20220726, end: 20220808

REACTIONS (7)
  - Thrombocytopenia [Not Recovered/Not Resolved]
  - Neutropenia [Not Recovered/Not Resolved]
  - Streptococcal bacteraemia [Not Recovered/Not Resolved]
  - Febrile neutropenia [Recovered/Resolved]
  - Atrial fibrillation [Not Recovered/Not Resolved]
  - Delirium [Not Recovered/Not Resolved]
  - Hypoxia [Recovered/Resolved]

NARRATIVE: CASE EVENT DATE: 20220730
